FAERS Safety Report 7709799-X (Version None)
Quarter: 2011Q3

REPORT INFORMATION
  Report Type: 
  Country: None (occurrence: None)
  Receive Date: 20110825
  Receipt Date: 20110818
  Transmission Date: 20111222
  Serious: Yes (Hospitalization)
  Sender: FDA-Public Use
  Company Number: GB-PFIZER INC-2011191615

PATIENT
  Age: 52 Year
  Sex: Female
  Weight: 75 kg

DRUGS (10)
  1. NICORANDIL [Concomitant]
  2. SULFASALAZINE [Suspect]
     Indication: PSORIATIC ARTHROPATHY
     Dosage: 500 MG, 6X/1 DAY
     Route: 048
     Dates: start: 20110621, end: 20110712
  3. DICLOFENAC [Concomitant]
  4. HYDROXYCHLOROQUINE [Concomitant]
     Dosage: 400 MG, 1X/DAY
     Route: 048
  5. ALENDRONIC ACID [Concomitant]
  6. SIMVASTATIN [Concomitant]
  7. RANITIDINE [Concomitant]
  8. DIAZEPAM [Concomitant]
  9. GABAPENTIN [Concomitant]
  10. MIRTAZAPINE [Concomitant]

REACTIONS (2)
  - RASH MACULAR [None]
  - OBSTRUCTIVE AIRWAYS DISORDER [None]
